FAERS Safety Report 5881030-X (Version None)
Quarter: 2008Q3

REPORT INFORMATION
  Report Type: 
  Country: None (occurrence: None)
  Receive Date: 20080912
  Receipt Date: 20080617
  Transmission Date: 20090109
  Serious: No
  Sender: FDA-Public Use
  Company Number: US-ABBOTT-08P-163-0457879-00

PATIENT
  Sex: Male
  Weight: 101 kg

DRUGS (3)
  1. HUMIRA [Suspect]
     Indication: PSORIASIS
     Route: 058
     Dates: start: 20080501
  2. HUMIRA [Suspect]
     Indication: PSORIATIC ARTHROPATHY
     Route: 058
  3. HUMIRA [Suspect]
     Route: 058
     Dates: end: 20080605

REACTIONS (4)
  - ARTHRALGIA [None]
  - DIARRHOEA [None]
  - MUSCULAR WEAKNESS [None]
  - MYALGIA [None]
